FAERS Safety Report 25074008 (Version 1)
Quarter: 2025Q1

REPORT INFORMATION
  Report Type: Spontaneous
  Country: SE (occurrence: SE)
  Receive Date: 20250313
  Receipt Date: 20250313
  Transmission Date: 20250409
  Serious: Yes (Hospitalization)
  Sender: ROCHE
  Company Number: SE-ROCHE-10000226125

PATIENT
  Age: 69 Year
  Sex: Female

DRUGS (4)
  1. TECENTRIQ [Suspect]
     Active Substance: ATEZOLIZUMAB
     Indication: Small cell lung cancer
     Route: 042
     Dates: start: 20240315
  2. TECENTRIQ [Suspect]
     Active Substance: ATEZOLIZUMAB
     Route: 058
     Dates: start: 20240614
  3. CARBOPLATIN [Concomitant]
     Active Substance: CARBOPLATIN
     Dates: start: 20240315
  4. ETOPOSIDE [Concomitant]
     Active Substance: ETOPOSIDE
     Dates: start: 20240315

REACTIONS (3)
  - Herpes zoster [Unknown]
  - Urosepsis [Unknown]
  - Disease progression [Unknown]

NARRATIVE: CASE EVENT DATE: 20240801
